FAERS Safety Report 19590990 (Version 2)
Quarter: 2021Q3

REPORT INFORMATION
  Report Type: Spontaneous
  Country: IT (occurrence: IT)
  Receive Date: 20210721
  Receipt Date: 20210726
  Transmission Date: 20211014
  Serious: Yes (Life-Threatening, Hospitalization, Other)
  Sender: FDA-Public Use
  Company Number: IT-SA-2021SA173822

PATIENT
  Age: 33 Year
  Sex: Female

DRUGS (27)
  1. INSULIN LISPRO [Suspect]
     Active Substance: INSULIN LISPRO
     Dosage: 6 IU AT 7.00 A.M
     Route: 058
  2. LABETALOL [Suspect]
     Active Substance: LABETALOL\LABETALOL HYDROCHLORIDE
     Dosage: 2 MG, QMN, CONTINUOUS INFUSION
     Route: 041
  3. SODIUM CHLORIDE. [Suspect]
     Active Substance: SODIUM CHLORIDE
     Dosage: 250 ML IN A 6?HOUR INFUSION PERIOD
  4. ATENOLOL. [Suspect]
     Active Substance: ATENOLOL
     Dosage: 25 MG, QD
     Route: 048
  5. POTASSIUM CHLORIDE. [Suspect]
     Active Substance: POTASSIUM CHLORIDE
     Indication: SUPPLEMENTATION THERAPY
     Dosage: 40 MEQ IN SALINE SOLUTION 250 ML IN 6?HOUR INFUSION PERIOD
  6. INSULIN LISPRO [Suspect]
     Active Substance: INSULIN LISPRO
     Dosage: 10 IU AT 06.00 P.M
     Route: 058
  7. MAGNESIUM SULFATE. [Suspect]
     Active Substance: MAGNESIUM SULFATE
     Indication: HYPERTENSIVE CRISIS
     Dosage: 40 MEQ IN SALINE SOLUTION 250 ML IN A 12?HOUR INFUSION PERIOD
  8. DOXAZOSIN MESILATE [Suspect]
     Active Substance: DOXAZOSIN MESYLATE
     Indication: PHAEOCHROMOCYTOMA CRISIS
     Dosage: 14 MG, QD (UPTO)
     Route: 048
  9. BISOPROLOL SALT NOT SPECIFIED [Suspect]
     Active Substance: BISOPROLOL
     Indication: HYPERTENSION
     Dosage: 2.5 MG, QD
  10. INSULIN LISPRO [Suspect]
     Active Substance: INSULIN LISPRO
     Indication: GESTATIONAL DIABETES
     Dosage: 10 IU AT 12.00 A.M
     Route: 058
  11. INSULIN GLARGINE [Suspect]
     Active Substance: INSULIN GLARGINE
     Indication: GESTATIONAL DIABETES
     Dosage: 15 IU, HS AT 09.00 P.M
     Route: 058
  12. MAGNESIUM SULFATE. [Suspect]
     Active Substance: MAGNESIUM SULFATE
     Indication: PROPHYLAXIS
  13. SODIUM CHLORIDE. [Suspect]
     Active Substance: SODIUM CHLORIDE
     Dosage: 250 ML IN A 12?HOUR INFUSION PERIOD
  14. LABETALOL [Suspect]
     Active Substance: LABETALOL\LABETALOL HYDROCHLORIDE
     Indication: HYPERTENSIVE CRISIS
     Dosage: 20 MG OVER 2 MIN
     Route: 040
  15. URAPIDIL [Suspect]
     Active Substance: URAPIDIL
     Indication: HYPERTENSIVE CRISIS
     Dosage: 25 MG OVER 5 MIN
     Route: 040
  16. URAPIDIL [Suspect]
     Active Substance: URAPIDIL
     Dosage: 0.5 MG, QMN
     Route: 041
  17. NIFEDIPINE. [Suspect]
     Active Substance: NIFEDIPINE
     Indication: HYPERTENSION
     Dosage: 20 MG, QD
  18. NIFEDIPINE. [Suspect]
     Active Substance: NIFEDIPINE
     Indication: PHAEOCHROMOCYTOMA CRISIS
     Dosage: 30 MG, QD
  19. SODIUM CHLORIDE. [Suspect]
     Active Substance: SODIUM CHLORIDE
     Dosage: 250 ML IN A 4?HOUR INFUSION PERIOD
  20. ATENOLOL. [Suspect]
     Active Substance: ATENOLOL
     Dosage: UPTITRATED
     Route: 048
  21. HYDROCHLOROTHIAZIDE. [Suspect]
     Active Substance: HYDROCHLOROTHIAZIDE
     Indication: HYPERTENSION
     Dosage: 6.25 MG, QD
  22. MAGNESIUM SULFATE. [Suspect]
     Active Substance: MAGNESIUM SULFATE
     Indication: BLOOD PRESSURE MANAGEMENT
     Dosage: 40 MEQ IN SALINE SOLUTION 250 ML IN A 4?HOUR INFUSION PERIOD
  23. ALPHA?METHYLDOPA [Suspect]
     Active Substance: METHYLDOPA
     Indication: HYPERTENSION
     Dosage: 500 MG, TID
  24. DOXAZOSIN MESILATE [Suspect]
     Active Substance: DOXAZOSIN MESYLATE
     Dosage: 8 MG, QD
     Route: 048
  25. ATENOLOL. [Suspect]
     Active Substance: ATENOLOL
     Indication: PHAEOCHROMOCYTOMA CRISIS
     Dosage: 12.5 MG, QD
     Route: 048
  26. METOCLOPRAMIDE HYDROCHLORIDE. [Suspect]
     Active Substance: METOCLOPRAMIDE HYDROCHLORIDE
     Indication: NAUSEA
     Dosage: 10 MG, QD
     Route: 048
  27. METOCLOPRAMIDE HYDROCHLORIDE. [Suspect]
     Active Substance: METOCLOPRAMIDE HYDROCHLORIDE
     Indication: DYSPEPSIA
     Dosage: 10 MG, BID
     Route: 048

REACTIONS (11)
  - Phaeochromocytoma crisis [Recovered/Resolved]
  - Headache [Recovered/Resolved]
  - Tachycardia [Recovered/Resolved]
  - Proteinuria [Recovered/Resolved]
  - Condition aggravated [Recovered/Resolved]
  - Exposure during pregnancy [Unknown]
  - Hypertensive crisis [Recovered/Resolved]
  - Anxiety [Recovered/Resolved]
  - Hypokalaemia [Recovered/Resolved]
  - Irritability [Recovered/Resolved]
  - Asthenia [Recovered/Resolved]
